FAERS Safety Report 25366982 (Version 5)
Quarter: 2025Q3

REPORT INFORMATION
  Report Type: Spontaneous
  Country: JP (occurrence: JP)
  Receive Date: 20250528
  Receipt Date: 20250828
  Transmission Date: 20251020
  Serious: Yes (Life-Threatening, Hospitalization, Other)
  Sender: ASTELLAS
  Company Number: JP-ASTELLAS-2025-AER-028121

PATIENT
  Age: 83 Year
  Sex: Male
  Weight: 40 kg

DRUGS (12)
  1. XTANDI [Suspect]
     Active Substance: ENZALUTAMIDE
     Indication: Prostate cancer metastatic
     Route: 048
     Dates: start: 20250327, end: 20250517
  2. Neurotropin tablet [Concomitant]
     Indication: Metastases to bone
     Route: 048
  3. Dutasteride capsule 0.5mg [Concomitant]
     Indication: Benign prostatic hyperplasia
     Route: 048
  4. BIO THREE OD tablet [Concomitant]
     Indication: Constipation
     Route: 048
  5. Gaslon tablet 4mg [Concomitant]
     Indication: Gastritis
     Route: 048
  6. Olanzapine Tablet 2.5mg [Concomitant]
     Indication: Schizophrenia
     Route: 048
  7. Benidipine tablet 4mg [Concomitant]
     Indication: Hypertension
     Route: 048
  8. Nelbon Tablet 5mg [Concomitant]
     Indication: Insomnia
     Route: 048
  9. Magnesium oxide tablet 330mg [Concomitant]
     Indication: Constipation
     Route: 048
  10. Celecoxib tablet 100mg [Concomitant]
     Indication: Metastases to bone
     Route: 048
  11. Gonax 120mg for Subcutaneous Injection [Concomitant]
     Indication: Prostate cancer metastatic
     Route: 058
     Dates: start: 20250327
  12. Leuplin for injection 3.75mg [Concomitant]
     Indication: Prostate cancer metastatic
     Route: 058
     Dates: start: 20250428

REACTIONS (1)
  - Interstitial lung disease [Recovering/Resolving]

NARRATIVE: CASE EVENT DATE: 20250511
